FAERS Safety Report 9833525 (Version 1)
Quarter: 2014Q1

REPORT INFORMATION
  Report Type: Report from Study
  Country: US (occurrence: US)
  Receive Date: 20140122
  Receipt Date: 20140122
  Transmission Date: 20141002
  Serious: Yes (Hospitalization)
  Sender: FDA-Public Use
  Company Number: US-ROCHE-1335708

PATIENT
  Sex: Male

DRUGS (4)
  1. XOLAIR [Suspect]
     Indication: ASTHMA
     Route: 058
  2. SINGULAIR [Concomitant]
  3. ALLEGRA [Concomitant]
     Route: 065
  4. DULERA [Concomitant]
     Route: 065

REACTIONS (7)
  - Pneumonia [Recovered/Resolved]
  - Weight decreased [Unknown]
  - Cough [Unknown]
  - Asthma [Unknown]
  - Nasopharyngitis [Unknown]
  - Dyspnoea [Unknown]
  - Oxygen saturation decreased [Unknown]
